FAERS Safety Report 24018803 (Version 2)
Quarter: 2024Q3

REPORT INFORMATION
  Report Type: Spontaneous
  Country: US (occurrence: US)
  Receive Date: 20240627
  Receipt Date: 20240710
  Transmission Date: 20241017
  Serious: Yes (Other)
  Sender: TEVA
  Company Number: US-TEVA-VS-3212210

PATIENT
  Age: 66 Year
  Sex: Female

DRUGS (6)
  1. HYDROXYUREA [Suspect]
     Active Substance: HYDROXYUREA
     Indication: Product used for unknown indication
     Dosage: HYDROXYUREA
     Route: 065
  2. ASPIRIN [Concomitant]
     Active Substance: ASPIRIN
     Indication: Product used for unknown indication
     Route: 065
  3. COLLAGENASE [Suspect]
     Active Substance: COLLAGENASE CLOSTRIDIUM HISTOLYTICUM
     Indication: Skin ulcer
     Route: 065
  4. HALOBETASOL [Suspect]
     Active Substance: HALOBETASOL
     Indication: Skin ulcer
     Route: 065
  5. LIDOCAINE [Suspect]
     Active Substance: LIDOCAINE
     Indication: Skin ulcer
     Route: 065
  6. HONEY [Suspect]
     Active Substance: HONEY
     Indication: Skin ulcer
     Route: 065

REACTIONS (2)
  - Skin ulcer [Recovered/Resolved]
  - Drug ineffective [Unknown]
